FAERS Safety Report 12690847 (Version 1)
Quarter: 2016Q3

REPORT INFORMATION
  Report Type: Spontaneous
  Country: GB (occurrence: GB)
  Receive Date: 20160826
  Receipt Date: 20160826
  Transmission Date: 20161109
  Serious: Yes (Death)
  Sender: FDA-Public Use
  Company Number: GB-TEVA-687135ACC

PATIENT
  Sex: Male

DRUGS (1)
  1. RILUZOLE ACTAVIS 50 MG FILM-COATED TABLET [Suspect]
     Active Substance: RILUZOLE
     Indication: MOTOR NEURONE DISEASE

REACTIONS (1)
  - Death [Fatal]
